FAERS Safety Report 6598983-7 (Version None)
Quarter: 2010Q1

REPORT INFORMATION
  Report Type: 
  Country: None (occurrence: None)
  Receive Date: 20100224
  Receipt Date: 20090513
  Transmission Date: 20100710
  Serious: No
  Sender: FDA-Public Use
  Company Number: US-BRISTOL-MYERS SQUIBB COMPANY-14622583

PATIENT
  Age: 59 Year
  Sex: Female

DRUGS (5)
  1. GLUCOPHAGE [Suspect]
  2. JANUVIA [Suspect]
     Indication: DIABETES MELLITUS
     Dosage: PRODUCT CIRCULAR NO.9762707
     Route: 048
     Dates: start: 20090425
  3. ACCUPRIL [Concomitant]
  4. ALLEGRA [Concomitant]
  5. VOLTAREN [Concomitant]

REACTIONS (1)
  - NAUSEA [None]
